FAERS Safety Report 5411927-6 (Version None)
Quarter: 2007Q3

REPORT INFORMATION
  Report Type: 
  Country: None (occurrence: None)
  Receive Date: 20070813
  Receipt Date: 20070807
  Transmission Date: 20080115
  Serious: Yes (Disabling, Other)
  Sender: FDA-Public Use
  Company Number: FR-ELI_LILLY_AND_COMPANY-FR200708001245

PATIENT
  Age: 61 Year
  Sex: Male

DRUGS (2)
  1. CIALIS [Suspect]
     Dosage: UNK, UNK
     Route: 048
     Dates: start: 20070101, end: 20070101
  2. VIAGRA [Concomitant]
     Dosage: 100 MG, 4/W
     Route: 048
     Dates: start: 20060101, end: 20070101

REACTIONS (1)
  - OPTIC NEUROPATHY [None]
